FAERS Safety Report 12977275 (Version 1)
Quarter: 2016Q4

REPORT INFORMATION
  Report Type: Spontaneous
  Country: US (occurrence: US)
  Receive Date: 20161128
  Receipt Date: 20161128
  Transmission Date: 20170207
  Serious: No
  Sender: FDA-Public Use
  Company Number: US-JAZZ-2016-US-016985

PATIENT
  Age: 34 Year
  Sex: Female
  Weight: 62.4 kg

DRUGS (19)
  1. XYREM [Suspect]
     Active Substance: SODIUM OXYBATE
     Indication: NARCOLEPSY
     Dosage: 2.25 G, BID
     Route: 048
     Dates: start: 20160826, end: 201609
  2. IRON [Concomitant]
     Active Substance: IRON
     Indication: ANAEMIA
  3. DEXTROAMPHETAMINE. [Concomitant]
     Active Substance: DEXTROAMPHETAMINE
  4. PANTOPRAZOLE SODIUM. [Concomitant]
     Active Substance: PANTOPRAZOLE SODIUM
     Indication: REFLUX GASTRITIS
  5. XYREM [Suspect]
     Active Substance: SODIUM OXYBATE
     Indication: SOMNOLENCE
     Dosage: DOSE ADJUSTMENT
     Route: 048
     Dates: start: 201609
  6. ADDERALL [Concomitant]
     Active Substance: AMPHETAMINE ASPARTATE\AMPHETAMINE SULFATE\DEXTROAMPHETAMINE SACCHARATE\DEXTROAMPHETAMINE SULFATE
     Indication: SOMNOLENCE
  7. CENTRUM SILVER [Concomitant]
     Active Substance: MINERALS\VITAMINS
  8. XYREM [Suspect]
     Active Substance: SODIUM OXYBATE
     Indication: HYPERSOMNIA
  9. VYVANSE [Concomitant]
     Active Substance: LISDEXAMFETAMINE DIMESYLATE
     Indication: SOMNOLENCE
  10. CYANOCOBALAMIN. [Concomitant]
     Active Substance: CYANOCOBALAMIN
  11. DICLOFENAC SODIUM. [Concomitant]
     Active Substance: DICLOFENAC SODIUM
  12. PROTONIX [Concomitant]
     Active Substance: PANTOPRAZOLE SODIUM
     Indication: GASTROOESOPHAGEAL REFLUX DISEASE
  13. KLONOPIN [Concomitant]
     Active Substance: CLONAZEPAM
     Indication: FEELING JITTERY
  14. TYLENOL EXTRA STRENGTH [Concomitant]
     Active Substance: ACETAMINOPHEN
     Indication: PAIN
  15. VITAMINS NOS [Concomitant]
     Active Substance: VITAMINS
     Indication: GASTRIC BYPASS
  16. IBUPROFEN. [Concomitant]
     Active Substance: IBUPROFEN
  17. XYREM [Suspect]
     Active Substance: SODIUM OXYBATE
     Indication: SLEEP APNOEA SYNDROME
     Dosage: 4.5 G, BID
     Route: 048
     Dates: start: 2016
  18. CLONAZEPAM. [Concomitant]
     Active Substance: CLONAZEPAM
     Indication: FEELING JITTERY
  19. VITAMIN B12 [Concomitant]
     Active Substance: CYANOCOBALAMIN
     Indication: GASTRIC BYPASS

REACTIONS (2)
  - Myalgia [Recovered/Resolved]
  - Feeling cold [Unknown]

NARRATIVE: CASE EVENT DATE: 201608
